FAERS Safety Report 6655692-3 (Version None)
Quarter: 2010Q1

REPORT INFORMATION
  Report Type: 
  Country: None (occurrence: None)
  Receive Date: 20100329
  Receipt Date: 20100323
  Transmission Date: 20100710
  Serious: Yes (Hospitalization)
  Sender: FDA-Public Use
  Company Number: JP-SANOFI-AVENTIS-2010SA012450

PATIENT
  Age: 56 Year
  Sex: Female
  Weight: 64.3 kg

DRUGS (7)
  1. LANTUS [Suspect]
     Indication: DIABETES MELLITUS
     Dosage: DOSE:8 UNIT(S)
     Route: 058
     Dates: end: 20100302
  2. SOLOSTAR [Suspect]
     Indication: HYPERGLYCAEMIA
     Dates: end: 20100302
  3. MEVALOTIN [Concomitant]
     Indication: HYPERLIPIDAEMIA
     Route: 048
     Dates: end: 20100302
  4. PIOGLITAZONE HCL [Concomitant]
     Indication: DIABETES MELLITUS
     Route: 048
     Dates: end: 20100302
  5. MIGLITOL [Concomitant]
     Indication: DIABETES MELLITUS
     Route: 048
     Dates: end: 20100302
  6. FLOMOX [Concomitant]
     Route: 048
     Dates: end: 20100302
  7. LORCAM [Concomitant]
     Route: 048
     Dates: end: 20100302

REACTIONS (1)
  - HEPATIC FUNCTION ABNORMAL [None]
